FAERS Safety Report 10797120 (Version 2)
Quarter: 2015Q1

REPORT INFORMATION
  Report Type: Spontaneous
  Country: JP (occurrence: JP)
  Receive Date: 20150216
  Receipt Date: 20150323
  Transmission Date: 20150721
  Serious: Yes (Hospitalization)
  Sender: FDA-Public Use
  Company Number: JP-JNJFOC-20150206716

PATIENT
  Age: 84 Year
  Sex: Male

DRUGS (4)
  1. DECADRON [Concomitant]
     Active Substance: DEXAMETHASONE
     Route: 065
  2. TEGAFUR URACIL [Concomitant]
     Active Substance: TEGAFUR
     Route: 048
  3. ZYTIGA [Suspect]
     Active Substance: ABIRATERONE ACETATE
     Indication: PROSTATE CANCER
     Route: 048
     Dates: start: 20150121, end: 20150128
  4. LH-RH [Concomitant]
     Route: 065
     Dates: start: 20150121

REACTIONS (2)
  - Infection [Not Recovered/Not Resolved]
  - Shock [Not Recovered/Not Resolved]

NARRATIVE: CASE EVENT DATE: 20150128
